FAERS Safety Report 7340093-5 (Version None)
Quarter: 2011Q1

REPORT INFORMATION
  Report Type: 
  Country: None (occurrence: None)
  Receive Date: 20110309
  Receipt Date: 20110309
  Transmission Date: 20110831
  Serious: Yes (Other)
  Sender: FDA-Public Use
  Company Number: PHHO2008JP06592

PATIENT
  Sex: Female
  Weight: 53 kg

DRUGS (2)
  1. FTY [Suspect]
     Indication: MULTIPLE SCLEROSIS
     Dosage: 1.25 MG, UNK
     Route: 048
     Dates: start: 20080522
  2. RIVOTRIL [Concomitant]
     Dosage: 2 MG, UNK
     Route: 048
     Dates: start: 20070416

REACTIONS (3)
  - ATRIOVENTRICULAR BLOCK SECOND DEGREE [None]
  - HYPOTENSION [None]
  - BRADYCARDIA [None]
